FAERS Safety Report 24549278 (Version 1)
Quarter: 2024Q4

REPORT INFORMATION
  Report Type: Spontaneous
  Country: US (occurrence: None)
  Receive Date: 20241024
  Receipt Date: 20241024
  Transmission Date: 20250115
  Serious: No
  Sender: Public
  Company Number: None

PATIENT
  Age: 11 Day
  Sex: Male
  Weight: 3.12 kg

DRUGS (1)
  1. BEYFORTUS [Suspect]
     Active Substance: NIRSEVIMAB-ALIP
     Dosage: OTHER FREQUENCY : ONCE;?
     Route: 030

REACTIONS (3)
  - Dose calculation error [None]
  - Incorrect dose administered [None]
  - Accidental overdose [None]

NARRATIVE: CASE EVENT DATE: 20241017
